FAERS Safety Report 9747098 (Version 1)
Quarter: 2013Q4

REPORT INFORMATION
  Report Type: Report from Study
  Country: US (occurrence: US)
  Receive Date: 20131211
  Receipt Date: 20131211
  Transmission Date: 20140711
  Serious: Yes (Death)
  Sender: FDA-Public Use
  Company Number: PHEH2013US025532

PATIENT
  Age: 59 Year
  Sex: Male

DRUGS (6)
  1. ACYCLOVIR [Concomitant]
  2. MULTI-VIT [Concomitant]
  3. STOOL SOFTENER [Concomitant]
  4. TASIGNA [Suspect]
     Indication: NEOPLASM MALIGNANT
     Dosage: 400 MG, BID
     Route: 048
     Dates: start: 20130730
  5. TASIGNA [Suspect]
     Indication: OFF LABEL USE
  6. SPRYCEL//DASATINIB [Suspect]
     Indication: NEOPLASM MALIGNANT
     Dosage: 100 MG, QD
     Dates: start: 20130606

REACTIONS (1)
  - Death [Fatal]
